FAERS Safety Report 4745250-X (Version None)
Quarter: 2005Q3

REPORT INFORMATION
  Report Type: 
  Country: None (occurrence: None)
  Receive Date: 20050815
  Receipt Date: 20050809
  Transmission Date: 20060218
  Serious: Yes (Life-Threatening, Hospitalization)
  Sender: FDA-Public Use
  Company Number: PHHO2005DE12530

PATIENT
  Age: 42 Year
  Sex: Female

DRUGS (17)
  1. MAGNESIUM [Concomitant]
     Dates: start: 20050527, end: 20050717
  2. ALBUTEROL SULFATE HFA [Concomitant]
     Dates: start: 20050527
  3. VORICONAZOLE [Concomitant]
     Dates: start: 20050605, end: 20050712
  4. ACC [Concomitant]
  5. NEORAL [Suspect]
     Indication: LUNG TRANSPLANT
     Dates: start: 20050527
  6. DACLIZUMAB [Suspect]
     Indication: LUNG TRANSPLANT
     Dosage: 1 MG/KG
     Route: 042
     Dates: start: 20050526, end: 20050630
  7. MYCOPHENOLATE MOFETIL [Suspect]
     Indication: LUNG TRANSPLANT
     Dosage: 1000 MG, BID
     Route: 048
     Dates: start: 20050527, end: 20050713
  8. PIPERACILLIN [Suspect]
     Indication: PNEUMONIA
     Dosage: 6 GRAM
     Dates: start: 20050712, end: 20050721
  9. SULBACTAM [Suspect]
     Indication: PNEUMONIA
     Dosage: 0.5 G, TID
     Dates: start: 20050712, end: 20050721
  10. CIDOFOVIR [Concomitant]
     Dates: start: 20050715
  11. COTRIMOXAZOL [Concomitant]
     Dates: start: 20050531
  12. ACYCLOVIR [Concomitant]
     Dates: start: 20050630, end: 20050715
  13. ITRACONAZOLE [Concomitant]
     Dates: start: 20050427, end: 20050715
  14. RANITIDINE HCL [Concomitant]
     Dates: start: 20050527, end: 20050715
  15. CALCIUM GLUCONATE [Concomitant]
     Dates: start: 20050527, end: 20050717
  16. EISEN-II-SULFAT [Concomitant]
     Dates: start: 20050622, end: 20050717
  17. AMPHO-MORONAL [Concomitant]
     Dates: start: 20050527

REACTIONS (16)
  - ADENOVIRUS INFECTION [None]
  - BACTERIA STOOL IDENTIFIED [None]
  - CHILLS [None]
  - CLOSTRIDIUM COLITIS [None]
  - COMA [None]
  - COUGH [None]
  - DYSPNOEA [None]
  - EXCITABILITY [None]
  - PERITONITIS [None]
  - PNEUMONIA [None]
  - PSEUDOMONAS INFECTION [None]
  - PYREXIA [None]
  - RESPIRATORY FAILURE [None]
  - SEPSIS [None]
  - TACHYPNOEA [None]
  - TRACHEOSTOMY [None]
